FAERS Safety Report 20406769 (Version 5)
Quarter: 2024Q3

REPORT INFORMATION
  Report Type: Spontaneous
  Country: US (occurrence: US)
  Receive Date: 20220131
  Receipt Date: 20240829
  Transmission Date: 20241016
  Serious: Yes (Hospitalization, Other)
  Sender: PFIZER
  Company Number: US-PFIZER INC-202101513629

PATIENT
  Age: 63 Year
  Sex: Female

DRUGS (1)
  1. XELJANZ XR [Suspect]
     Active Substance: TOFACITINIB CITRATE
     Dosage: 11 MG
     Dates: end: 202401

REACTIONS (6)
  - Cerebrovascular accident [Unknown]
  - Hypertension [Unknown]
  - Fibromyalgia [Unknown]
  - Disturbance in attention [Unknown]
  - Pain [Unknown]
  - Impaired driving ability [Unknown]
